FAERS Safety Report 8463754-3 (Version None)
Quarter: 2012Q2

REPORT INFORMATION
  Report Type: 
  Country: None (occurrence: None)
  Receive Date: 20120625
  Receipt Date: 20120611
  Transmission Date: 20120825
  Serious: No
  Sender: FDA-Public Use
  Company Number: US-ROXANE LABORATORIES, INC.-2012-RO-01415RO

PATIENT
  Age: 72 Year
  Sex: Male

DRUGS (2)
  1. NASONEX [Suspect]
  2. FLUTICASONE PROPIONATE [Suspect]
     Route: 055
     Dates: start: 20120401

REACTIONS (6)
  - CHILLS [None]
  - INFLUENZA [None]
  - OROPHARYNGEAL PAIN [None]
  - PHARYNGEAL ERYTHEMA [None]
  - HYPERSENSITIVITY [None]
  - BACK PAIN [None]
